FAERS Safety Report 24062842 (Version 2)
Quarter: 2024Q4

REPORT INFORMATION
  Report Type: Report from Study
  Country: US (occurrence: None)
  Receive Date: 20240709
  Receipt Date: 20241217
  Transmission Date: 20250115
  Serious: Yes (Hospitalization)
  Sender: SUPERNUS PHARMACEUTICALS, INC.
  Company Number: US-ARIS GLOBAL-SUP202407-002339

PATIENT
  Sex: Female

DRUGS (2)
  1. TOPIRAMATE [Suspect]
     Active Substance: TOPIRAMATE
     Indication: Migraine
     Dosage: DOSE ESCALATION OCCURRED EVERY 2 WEEKS OVER A PERIOD OF 8 WEEKS, 2 MG PER KILOGRAM
  2. ACETAMINOPHEN [Suspect]
     Active Substance: ACETAMINOPHEN
     Indication: Product used for unknown indication
     Dosage: NOT PROVIDED

REACTIONS (2)
  - Hepatic enzyme increased [Recovered/Resolved]
  - Suicide attempt [Recovered/Resolved]
